FAERS Safety Report 4895680-0 (Version None)
Quarter: 2005Q4

REPORT INFORMATION
  Report Type: 
  Country: None (occurrence: None)
  Receive Date: 20051220
  Receipt Date: 20050613
  Transmission Date: 20060501
  Serious: Yes (Death)
  Sender: FDA-Public Use
  Company Number: 200511235BWH

PATIENT
  Sex: Male

DRUGS (1)
  1. TRASYLOL [Suspect]
     Indication: CORONARY ARTERY SURGERY

REACTIONS (3)
  - CARDIO-RESPIRATORY ARREST [None]
  - INTRACARDIAC THROMBUS [None]
  - THROMBOSIS [None]
